FAERS Safety Report 9055166 (Version 1)
Quarter: 2013Q1

REPORT INFORMATION
  Report Type: Spontaneous
  Country: BR (occurrence: BR)
  Receive Date: 20130206
  Receipt Date: 20130206
  Transmission Date: 20140127
  Serious: Yes (Other)
  Sender: FDA-Public Use
  Company Number: BR-JNJFOC-20130117330

PATIENT
  Age: 80 Year
  Sex: Female

DRUGS (6)
  1. REMINYL ER [Suspect]
     Indication: MEMORY IMPAIRMENT
     Route: 065
     Dates: start: 20121231, end: 20121231
  2. REMINYL ER [Suspect]
     Indication: MEMORY IMPAIRMENT
     Route: 065
     Dates: start: 201201, end: 20121231
  3. PARACETAMOL [Concomitant]
     Indication: OSTEOPOROSIS
     Route: 065
  4. PARACETAMOL [Concomitant]
     Indication: OSTEOARTHRITIS
     Route: 065
  5. BABY ACETYLSALICYLIC ACID [Concomitant]
     Indication: CEREBROVASCULAR ACCIDENT PROPHYLAXIS
     Route: 065
  6. CHOLECALCIFEROL [Concomitant]
     Indication: OSTEOPOROSIS
     Route: 065

REACTIONS (3)
  - Coordination abnormal [Recovered/Resolved]
  - Vomiting [Recovered/Resolved]
  - Cold sweat [Recovered/Resolved]
